FAERS Safety Report 21009704 (Version 1)
Quarter: 2022Q2

REPORT INFORMATION
  Report Type: Spontaneous
  Country: US (occurrence: None)
  Receive Date: 20220626
  Receipt Date: 20220626
  Transmission Date: 20220720
  Serious: Yes (Hospitalization, Disabling)
  Sender: FDA-Public Use
  Company Number: None

PATIENT
  Age: 63 Year
  Sex: Female
  Weight: 51.75 kg

DRUGS (1)
  1. MACROBID [Suspect]
     Active Substance: NITROFURANTOIN\NITROFURANTOIN MONOHYDRATE
     Indication: Urinary tract infection
     Dosage: FREQUENCY : DAILY;?
     Route: 048
     Dates: start: 20190105, end: 20191107

REACTIONS (9)
  - Cough [None]
  - Dyspnoea [None]
  - Liver disorder [None]
  - Hypoaesthesia [None]
  - Fatigue [None]
  - Eructation [None]
  - Neuropathy peripheral [None]
  - Pain [None]
  - Lung opacity [None]

NARRATIVE: CASE EVENT DATE: 20191107
